FAERS Safety Report 14736906 (Version 1)
Quarter: 2018Q2

REPORT INFORMATION
  Report Type: Spontaneous
  Country: US (occurrence: US)
  Receive Date: 20180409
  Receipt Date: 20180409
  Transmission Date: 20180711
  Serious: Yes (Death, Hospitalization)
  Sender: FDA-Public Use
  Company Number: US-BIOCOMPATIBLES UK LTD-2018BTG01636

PATIENT
  Age: 54 Year
  Sex: Male

DRUGS (7)
  1. CROFAB [Suspect]
     Active Substance: CROTALIDAE POLYVALENT IMMUNE FAB (OVINE)
     Dosage: 2 VIALS, SINGLE
     Route: 042
  2. CROFAB [Suspect]
     Active Substance: CROTALIDAE POLYVALENT IMMUNE FAB (OVINE)
     Dosage: 1 VIALS, SINGLE
     Route: 042
  3. CROFAB [Suspect]
     Active Substance: CROTALIDAE POLYVALENT IMMUNE FAB (OVINE)
     Indication: SNAKE BITE
     Dosage: 4 VIALS, SINGLE
     Route: 042
  4. CROFAB [Suspect]
     Active Substance: CROTALIDAE POLYVALENT IMMUNE FAB (OVINE)
     Dosage: 2 VIALS, SINGLE
     Route: 042
  5. CROFAB [Suspect]
     Active Substance: CROTALIDAE POLYVALENT IMMUNE FAB (OVINE)
     Dosage: 4 VIALS, SINGLE
     Route: 042
  6. CROFAB [Suspect]
     Active Substance: CROTALIDAE POLYVALENT IMMUNE FAB (OVINE)
     Dosage: 1 VIALS, SINGLE
     Route: 042
  7. CROFAB [Suspect]
     Active Substance: CROTALIDAE POLYVALENT IMMUNE FAB (OVINE)
     Dosage: 2 VIALS, SINGLE
     Route: 042

REACTIONS (7)
  - Mental impairment [Unknown]
  - Disseminated intravascular coagulation [Fatal]
  - Activated partial thromboplastin time prolonged [Recovered/Resolved]
  - Haemorrhage intracranial [Fatal]
  - Brain death [Fatal]
  - Prothrombin time prolonged [Recovered/Resolved]
  - Brain oedema [Fatal]
